FAERS Safety Report 19251670 (Version 2)
Quarter: 2021Q2

REPORT INFORMATION
  Report Type: Report from Study
  Country: KR (occurrence: KR)
  Receive Date: 20210512
  Receipt Date: 20210517
  Transmission Date: 20210717
  Serious: Yes (Death, Life-Threatening, Other)
  Sender: FDA-Public Use
  Company Number: KR-EISAI MEDICAL RESEARCH-EC-2021-089861

PATIENT
  Age: 75 Year
  Sex: Male
  Weight: 70 kg

DRUGS (20)
  1. ADIPAM [Concomitant]
     Indication: RASH
     Route: 048
     Dates: start: 20210224, end: 20210330
  2. KYONGBO CEFTRIAXONE SODIUM [Concomitant]
     Indication: URINARY TRACT INFECTION
     Route: 042
     Dates: start: 20210414, end: 20210414
  3. MECKOOL [Concomitant]
     Indication: PROPHYLAXIS
     Route: 042
     Dates: start: 20210415, end: 20210416
  4. PLETAAL [Concomitant]
     Active Substance: CILOSTAZOL
     Indication: ARTERIOSCLEROSIS
     Route: 048
     Dates: start: 20200109, end: 20210327
  5. MEGACE [Concomitant]
     Active Substance: MEGESTROL ACETATE
     Indication: PROPHYLAXIS
     Route: 048
     Dates: start: 20210217, end: 20210316
  6. SOLONDO [Concomitant]
     Active Substance: PREDNISOLONE
     Indication: RASH
     Route: 048
     Dates: start: 20210223, end: 20210330
  7. TRIDOL [Concomitant]
     Active Substance: TRAMADOL HYDROCHLORIDE
     Indication: URINARY TRACT INFECTION
     Dates: start: 20210415, end: 20210416
  8. LENVIMA [Suspect]
     Active Substance: LENVATINIB
     Route: 048
     Dates: start: 20210224, end: 20210414
  9. TEVETEN PLUS [Concomitant]
     Active Substance: EPROSARTAN\HYDROCHLOROTHIAZIDE
     Indication: HYPERTENSION
     Route: 048
     Dates: start: 20180628
  10. DIAMICRON MR [Concomitant]
     Active Substance: GLICLAZIDE
     Indication: DIABETES MELLITUS
     Route: 048
     Dates: start: 20210315
  11. DENOGAN [Concomitant]
     Active Substance: PROPACETAMOL HYDROCHLORIDE
     Indication: URINARY TRACT INFECTION
     Dates: start: 20210414, end: 20210415
  12. AVELOX [Concomitant]
     Active Substance: MOXIFLOXACIN HYDROCHLORIDE
     Indication: URINARY TRACT INFECTION
     Route: 042
     Dates: start: 20210414, end: 20210414
  13. DONGA GASTER [Concomitant]
     Indication: PROPHYLAXIS
     Route: 042
     Dates: start: 20210415, end: 20210418
  14. TRAJENTA DUO [Concomitant]
     Active Substance: LINAGLIPTIN\METFORMIN HYDROCHLORIDE
     Indication: DIABETES MELLITUS
     Route: 048
     Dates: start: 20170818, end: 20210327
  15. HARNAL [Concomitant]
     Active Substance: TAMSULOSIN HYDROCHLORIDE
     Indication: BENIGN PROSTATIC HYPERPLASIA
     Route: 048
     Dates: start: 20210217
  16. LASIX [Concomitant]
     Active Substance: FUROSEMIDE
     Indication: PROPHYLAXIS
     Route: 042
     Dates: start: 20210416, end: 20210417
  17. TERIPIN [Concomitant]
     Indication: PROPHYLAXIS
     Route: 042
     Dates: start: 20210416, end: 20210418
  18. LENVIMA [Suspect]
     Active Substance: LENVATINIB
     Indication: HEPATOCELLULAR CARCINOMA
     Route: 048
     Dates: start: 20210210, end: 20210223
  19. PANTOLOC [Concomitant]
     Active Substance: PANTOPRAZOLE SODIUM
     Indication: PROPHYLAXIS
     Dates: start: 20210414, end: 20210415
  20. INVANZ [Concomitant]
     Active Substance: ERTAPENEM SODIUM
     Indication: URINARY TRACT INFECTION
     Route: 042
     Dates: start: 20210415, end: 20210418

REACTIONS (2)
  - Seizure [Unknown]
  - Urinary tract infection [Fatal]

NARRATIVE: CASE EVENT DATE: 20210303
